FAERS Safety Report 15085261 (Version 1)
Quarter: 2018Q3

REPORT INFORMATION
  Report Type: Spontaneous
  Country: GB (occurrence: GB)
  Receive Date: 20180628
  Receipt Date: 20180628
  Transmission Date: 20181010
  Serious: Yes (Other)
  Sender: FDA-Public Use
  Company Number: GB-SHIRE-GB201737975

PATIENT

DRUGS (4)
  1. HARTMANN^S [Suspect]
     Active Substance: CALCIUM CHLORIDE\POTASSIUM CHLORIDE\SODIUM CHLORIDE\SODIUM LACTATE
     Indication: POST TRANSFUSION PURPURA
     Dosage: 30 ML/KG, QOD (DAY 32?39)
     Route: 065
  2. HUMAN ALBUMIN [Suspect]
     Active Substance: ALBUMIN HUMAN
     Indication: FLUID REPLACEMENT
     Dosage: 30 ML/KG WITH REPLACEMENT 5PERCENT W/V, QOD (DAYS 32?39)
     Route: 065
  3. PRIVIGEN [Suspect]
     Active Substance: HUMAN IMMUNOGLOBULIN G
     Indication: POST TRANSFUSION PURPURA
     Dosage: 2000 MG/KG, DIVIDED DOSES, DAY 43?46
     Route: 042
  4. PRIVIGEN [Suspect]
     Active Substance: HUMAN IMMUNOGLOBULIN G
     Dosage: 2000 MG/KG, DIVIDED DOSES, DAY 17?21
     Route: 042

REACTIONS (2)
  - Drug ineffective [Unknown]
  - Drug ineffective for unapproved indication [Unknown]
